FAERS Safety Report 9282162 (Version 4)
Quarter: 2013Q3

REPORT INFORMATION
  Report Type: Spontaneous
  Country: US (occurrence: US)
  Receive Date: 20130510
  Receipt Date: 20130911
  Transmission Date: 20140515
  Serious: Yes (Other)
  Sender: FDA-Public Use
  Company Number: US-PFIZER INC-2013144356

PATIENT
  Age: 50 Year
  Sex: Female
  Weight: 68.03 kg

DRUGS (7)
  1. LYRICA [Suspect]
     Indication: EYE DISORDER
     Dosage: 100 MG, 2X/DAY
     Dates: start: 2007
  2. LYRICA [Suspect]
     Dosage: 100 MG, 4X/DAY
     Route: 048
     Dates: start: 2007
  3. LYRICA [Suspect]
     Dosage: 200 MG, 2X/DAY
     Route: 048
  4. LYRICA [Suspect]
     Dosage: 100 MG, 4X/DAY
     Route: 048
  5. DEMADEX [Concomitant]
     Dosage: UNK
  6. CLONAZEPAM [Concomitant]
     Dosage: 2 MG, 4X/DAY
  7. CLONAZEPAM [Concomitant]
     Dosage: 2 MG, 3X/DAY

REACTIONS (8)
  - Off label use [Unknown]
  - Intentional drug misuse [Unknown]
  - Drug dose omission [Unknown]
  - Blindness [Unknown]
  - Paraesthesia [Recovered/Resolved]
  - Drug intolerance [Unknown]
  - Pre-existing condition improved [Unknown]
  - Therapeutic response unexpected [Unknown]
